FAERS Safety Report 12705070 (Version 1)
Quarter: 2016Q3

REPORT INFORMATION
  Report Type: Spontaneous
  Country: FR (occurrence: FR)
  Receive Date: 20160831
  Receipt Date: 20160831
  Transmission Date: 20161109
  Serious: Yes (Hospitalization, Other)
  Sender: FDA-Public Use
  Company Number: FR-ASTRAZENECA-2016SE91333

PATIENT
  Age: 61 Year
  Sex: Female

DRUGS (9)
  1. CANCIDAS [Suspect]
     Active Substance: CASPOFUNGIN ACETATE
     Indication: SYSTEMIC CANDIDA
     Route: 042
     Dates: start: 201409, end: 20140925
  2. TIENAM [Concomitant]
     Active Substance: CILASTATIN SODIUM\IMIPENEM
     Dosage: 2 MG/ML
  3. INEXIUM [Suspect]
     Active Substance: ESOMEPRAZOLE
     Indication: PRODUCT USED FOR UNKNOWN INDICATION
     Route: 048
     Dates: start: 201409
  4. AMBISOME [Concomitant]
     Active Substance: AMPHOTERICIN B
     Dosage: 50 MG
  5. AMIKACINE MYLAN [Concomitant]
     Active Substance: AMIKACIN
     Dosage: 1G
  6. VFEND [Suspect]
     Active Substance: VORICONAZOLE
     Indication: FUNGAL INFECTION
     Route: 065
     Dates: start: 201409
  7. ZYVOXID [Concomitant]
     Active Substance: LINEZOLID
     Dosage: 2 MG/ML
  8. CIPROFLOXACINE KABI [Concomitant]
     Active Substance: CIPROFLOXACIN
     Dosage: 400 MG/200 ML
  9. LASILIX [Suspect]
     Active Substance: FUROSEMIDE
     Indication: PRODUCT USED FOR UNKNOWN INDICATION
     Route: 065
     Dates: start: 201409

REACTIONS (11)
  - Eosinophilia [Recovered/Resolved]
  - Multiple organ dysfunction syndrome [Unknown]
  - Renal impairment [Unknown]
  - Blister [Recovered/Resolved]
  - Septic shock [Unknown]
  - Hepatic function abnormal [Unknown]
  - Toxic skin eruption [Unknown]
  - Acute generalised exanthematous pustulosis [Recovered/Resolved]
  - Rash maculo-papular [Recovered/Resolved]
  - Skin exfoliation [Recovered/Resolved]
  - Oedema peripheral [Recovered/Resolved]

NARRATIVE: CASE EVENT DATE: 20140923
